FAERS Safety Report 9734203 (Version 3)
Quarter: 2014Q2

REPORT INFORMATION
  Report Type: Report from Study
  Country: US (occurrence: US)
  Receive Date: 20131205
  Receipt Date: 20140618
  Transmission Date: 20141212
  Serious: Yes (Death, Hospitalization, Other)
  Sender: FDA-Public Use
  Company Number: US-TEVA-448617USA

PATIENT
  Age: 64 Year
  Sex: Male

DRUGS (35)
  1. FLUOROURACIL [Suspect]
     Indication: COLORECTAL CANCER STAGE IV
     Dosage: 1/2 WEEK
     Route: 040
     Dates: start: 20130730, end: 20131022
  2. FLUOROURACIL [Suspect]
     Dosage: 171.4286 MG/M2 DAILY;
     Route: 042
     Dates: start: 20130730
  3. FLUOROURACIL [Suspect]
     Route: 040
     Dates: start: 20130923
  4. FLUOROURACIL [Suspect]
     Route: 042
  5. IRINOTECAN [Suspect]
     Indication: COLORECTAL CANCER STAGE IV
     Dosage: 1/2 WEEK
     Route: 042
     Dates: start: 20130730, end: 20131022
  6. IRINOTECAN [Suspect]
     Route: 042
     Dates: start: 20130923
  7. FOLIC ACID [Suspect]
     Indication: COLORECTAL CANCER STAGE IV
     Dosage: 1/2 WEEK
     Route: 042
     Dates: start: 20130813, end: 20131022
  8. LOPERAMIDE [Suspect]
     Indication: PREMEDICATION
     Route: 048
     Dates: start: 20130730, end: 20131022
  9. DIPHENHYDRAMINE [Suspect]
     Indication: PREMEDICATION
     Route: 048
     Dates: start: 20130813, end: 20131022
  10. RANITIDINE [Suspect]
     Indication: COLORECTAL CANCER STAGE IV
     Route: 048
     Dates: start: 20130813
  11. INVESTIGATIONAL DRUG [Suspect]
     Indication: COLORECTAL CANCER STAGE IV
     Dosage: 1/1 WEEK
     Route: 042
     Dates: start: 20130813, end: 20131022
  12. INVESTIGATIONAL DRUG [Suspect]
     Dosage: .3429 MILLIGRAM DAILY;
     Route: 042
     Dates: start: 20130923
  13. DEXAMETHASONE [Suspect]
     Indication: PREMEDICATION
     Route: 048
     Dates: start: 20130730, end: 20131022
  14. SUCRALFATE [Concomitant]
     Dates: start: 20130730, end: 20131022
  15. METFORMIN [Concomitant]
     Dates: start: 20110502
  16. GLICLAZIDE [Concomitant]
     Dates: start: 201105
  17. TRAZODONE HYDROCHLORIDE [Concomitant]
     Dates: start: 201108
  18. ACETYLSALICYLIC ACID [Concomitant]
     Dates: start: 200010
  19. PANTOPRAZOLE SODIUM [Concomitant]
     Dates: start: 200107
  20. SERTRALINE HYDROCHLORIDE [Concomitant]
     Dates: start: 199511
  21. LORAZEPAM [Concomitant]
     Dates: start: 199511
  22. MORPHINE SULFATE [Concomitant]
     Dates: start: 201009
  23. DIPHENOXYLATE W/ATROPINE SULFATE [Concomitant]
  24. HYDROCODONE [Concomitant]
     Dates: start: 20130831
  25. AMITRIPTYLINE HYDROCHLORIDE [Concomitant]
     Dates: start: 201305
  26. LOMOTIL [Concomitant]
     Dates: start: 201310
  27. METOCLOPRAMIDE [Concomitant]
     Dates: start: 20130730
  28. MAGNESIUM OXIDE [Concomitant]
     Dates: start: 20130813
  29. PHOSPHATE [Concomitant]
     Dates: start: 20130820
  30. POTASSIUM PHOSPHATE MONOBASIC [Concomitant]
     Dates: start: 20130820
  31. NYSTATIN [Concomitant]
     Dates: start: 20130903
  32. AMOXICILLIN [Concomitant]
     Dates: start: 20130906
  33. ATROPINE SULFATE [Concomitant]
     Dates: start: 20130730, end: 20131022
  34. ONDANSETRON HYDROCHLORIDE [Concomitant]
     Dates: start: 20130730, end: 20131022
  35. PROCHLORPERAZINE [Concomitant]
     Dates: start: 20130730, end: 20131022

REACTIONS (2)
  - Lung infection [Fatal]
  - Malignant neoplasm progression [Fatal]
